FAERS Safety Report 5328535-8 (Version None)
Quarter: 2007Q2

REPORT INFORMATION
  Report Type: 
  Country: None (occurrence: None)
  Receive Date: 20070518
  Receipt Date: 20070509
  Transmission Date: 20071010
  Serious: Yes (Hospitalization)
  Sender: FDA-Public Use
  Company Number: NL-AVENTIS-200714153GDDC

PATIENT
  Age: 62 Year
  Sex: Male
  Weight: 77 kg

DRUGS (4)
  1. GLIMEPIRIDE [Suspect]
     Indication: DIABETES MELLITUS
     Route: 048
     Dates: start: 20010101
  2. METFORMIN HCL [Suspect]
     Indication: DIABETES MELLITUS
     Dates: start: 20030101
  3. AVANDIA [Suspect]
     Indication: DIABETES MELLITUS
     Dates: start: 20060601
  4. CRESTOR [Concomitant]
     Dates: start: 20060601

REACTIONS (7)
  - DEPRESSION [None]
  - MALAISE [None]
  - MUSCLE SPASMS [None]
  - NIGHT SWEATS [None]
  - PARAESTHESIA [None]
  - SLEEP DISORDER [None]
  - TACHYPNOEA [None]
